FAERS Safety Report 9636760 (Version 1)
Quarter: 2013Q4

REPORT INFORMATION
  Report Type: Other
  Country: US (occurrence: US)
  Receive Date: 20131022
  Receipt Date: 20131022
  Transmission Date: 20140711
  Serious: Yes (Other)
  Sender: FDA-Public Use
  Company Number: US-LUPIN PHARMACEUTICALS INC.-E2B_00001358

PATIENT
  Age: 70 Year
  Sex: Male
  Weight: 71.73 kg

DRUGS (3)
  1. LISINOPRIL TABLETS USP 10 MG [Suspect]
     Indication: HYPERTENSION
     Dates: start: 201307
  2. OMEPRAZOLE [Concomitant]
     Indication: GASTRIC DISORDER
  3. FLOMAX [Concomitant]
     Indication: DYSURIA

REACTIONS (1)
  - Pemphigoid [Not Recovered/Not Resolved]
